FAERS Safety Report 9196178 (Version 1)
Quarter: 2013Q1

REPORT INFORMATION
  Report Type: Report from Study
  Country: US (occurrence: US)
  Receive Date: 20130328
  Receipt Date: 20130328
  Transmission Date: 20140127
  Serious: Yes (Hospitalization)
  Sender: FDA-Public Use
  Company Number: US-MPIJNJ-2013-01624

PATIENT
  Age: 72 Year
  Sex: Female
  Weight: 68 kg

DRUGS (14)
  1. VELCADE [Suspect]
     Indication: PLASMA CELL MYELOMA
     Route: 065
  2. DECADRON                           /00016001/ [Concomitant]
     Indication: PLASMA CELL MYELOMA
     Dosage: 10 MG, CYCLIC
     Route: 048
  3. DECADRON                           /00016001/ [Concomitant]
     Dosage: 20 MG, CYCLIC
     Route: 048
  4. REVLIMID [Concomitant]
     Indication: PLASMA CELL MYELOMA
     Dosage: 25 MG, CYCLIC
     Route: 048
  5. ASPIRIN [Concomitant]
     Dosage: 81 MG, UNK
     Route: 048
  6. MS IR [Concomitant]
     Indication: PAIN
     Dosage: 15 MG, PRN
     Route: 048
  7. LEVOTHYROXINE [Concomitant]
     Dosage: 100 ?G, UNK
     Route: 048
  8. LUNESTA [Concomitant]
     Dosage: 3 MG, UNK
     Route: 048
  9. ALEVE [Concomitant]
     Indication: PAIN
     Dosage: 1 DF, PRN
     Route: 048
  10. BIAXIN [Concomitant]
     Dosage: 500 MG, BID
  11. FAMOTIDINE [Concomitant]
     Dosage: 40 MG, UNK
     Route: 048
  12. VALTREX [Concomitant]
     Dosage: 500 MG, QD
     Route: 048
  13. ZOLOFT                             /01011401/ [Concomitant]
     Dosage: 50 MG, UNK
     Route: 048
  14. ZOFRAN                             /00955301/ [Concomitant]
     Indication: PAIN
     Dosage: 8 MG, Q8HR
     Route: 048

REACTIONS (3)
  - Empyema [Recovered/Resolved]
  - Pneumonia [Recovered/Resolved]
  - Neutropenia [Recovered/Resolved]
